FAERS Safety Report 4313874-X (Version None)
Quarter: 2004Q1

REPORT INFORMATION
  Report Type: 
  Country: None (occurrence: None)
  Receive Date: 20040305
  Receipt Date: 20040223
  Transmission Date: 20041129
  Serious: Yes (Life-Threatening, Hospitalization)
  Sender: FDA-Public Use
  Company Number: M2004-0091

PATIENT
  Age: 58 Year
  Sex: Male

DRUGS (5)
  1. ATENOLOL [Suspect]
     Indication: HYPERTENSION
     Dosage: 50MG, ORAL
     Route: 048
     Dates: start: 20040108, end: 20040114
  2. CRESTOR (ROSUVASTATIN) [Concomitant]
  3. ROSIGLITAZONE MALEATE [Concomitant]
  4. TILDIEM(DILTIAZEM) [Concomitant]
  5. FOSINOPRIL SODIUM [Concomitant]

REACTIONS (4)
  - DRUG INTERACTION [None]
  - HEPATITIS ACUTE [None]
  - MYOSITIS [None]
  - RENAL FAILURE ACUTE [None]
